FAERS Safety Report 15763947 (Version 1)
Quarter: 2018Q4

REPORT INFORMATION
  Report Type: Spontaneous
  Country: NL (occurrence: NL)
  Receive Date: 20181227
  Receipt Date: 20181227
  Transmission Date: 20190205
  Serious: Yes (Hospitalization)
  Sender: FDA-Public Use
  Company Number: NL-TEVA-2018-NL-991764

PATIENT
  Sex: Male
  Weight: 67 kg

DRUGS (5)
  1. OMEPRAZOL 40MG [Concomitant]
     Dosage: 80 MILLIGRAM DAILY;
  2. CEFTRIAXON 2000MG [Concomitant]
  3. ISORDIL 5MG [Concomitant]
     Route: 065
  4. METOCLOPRAMIDE TABLET, 10 MG (MILLIGRAM) [Suspect]
     Active Substance: METOCLOPRAMIDE
     Indication: HICCUPS
     Dosage: 60 MILLIGRAM DAILY;
     Dates: start: 20180228, end: 20180302
  5. BACLOFEN 10MG [Concomitant]
     Active Substance: BACLOFEN
     Dosage: 30 MILLIGRAM DAILY;

REACTIONS (5)
  - Confusional state [Recovered/Resolved]
  - Sedation [Recovered/Resolved]
  - Anxiety [Recovered/Resolved]
  - Restlessness [Recovered/Resolved]
  - Fear of death [Recovered/Resolved]
